FAERS Safety Report 5020093-0 (Version None)
Quarter: 2006Q2

REPORT INFORMATION
  Report Type: 
  Country: None (occurrence: None)
  Receive Date: 20060607
  Receipt Date: 20060526
  Transmission Date: 20061013
  Serious: Yes (Other)
  Sender: FDA-Public Use
  Company Number: US-ROCHE-449895

PATIENT
  Age: 48 Year
  Sex: Male

DRUGS (3)
  1. PEGASYS [Suspect]
     Route: 050
     Dates: start: 20051201, end: 20060525
  2. COPEGUS [Suspect]
     Route: 048
     Dates: start: 20051201, end: 20060525
  3. MULTIVITAMIN NOS [Concomitant]
     Route: 065

REACTIONS (4)
  - BLOOD COUNT ABNORMAL [None]
  - CONVULSION [None]
  - PLATELET COUNT DECREASED [None]
  - TREATMENT NONCOMPLIANCE [None]
